FAERS Safety Report 7290465 (Version 3)
Quarter: 2015Q2

REPORT INFORMATION
  Report Type: Spontaneous
  Country: FR (occurrence: FR)
  Receive Date: 20100223
  Receipt Date: 20150625
  Transmission Date: 20150821
  Serious: Yes (Congenital Anomaly, Other)
  Sender: FDA-Public Use
  Company Number: FR-AMGEN-US393651

PATIENT
  Age: 1 Day
  Sex: Female

DRUGS (1)
  1. ENBREL [Suspect]
     Active Substance: ETANERCEPT
     Indication: EXPOSURE VIA FATHER
     Dosage: UNK
     Route: 064
     Dates: start: 200804

REACTIONS (4)
  - Congenital eye disorder [Unknown]
  - Exposure via father [Recovered/Resolved]
  - Vascular malformation [Unknown]
  - Cataract congenital [Unknown]

NARRATIVE: CASE EVENT DATE: 200909
